FAERS Safety Report 6732644-6 (Version None)
Quarter: 2010Q2

REPORT INFORMATION
  Report Type: 
  Country: None (occurrence: None)
  Receive Date: 20100519
  Receipt Date: 20100513
  Transmission Date: 20101027
  Serious: Yes (Hospitalization, Other)
  Sender: FDA-Public Use
  Company Number: US-B.I. PHARMACEUTICALS,INC./RIDGEFIELD-2010-BP-05487BP

PATIENT
  Age: 65 Year
  Sex: Male

DRUGS (1)
  1. DULCOLAX [Suspect]
     Indication: CONSTIPATION
     Dosage: 2 TABLETS QD PRN
     Route: 048
     Dates: start: 20000101

REACTIONS (3)
  - BLADDER CANCER [None]
  - DIARRHOEA [None]
  - PROSTATE CANCER [None]
